FAERS Safety Report 6816922-8 (Version None)
Quarter: 2010Q3

REPORT INFORMATION
  Report Type: 
  Country: None (occurrence: None)
  Receive Date: 20100706
  Receipt Date: 20100629
  Transmission Date: 20110219
  Serious: Yes (Hospitalization)
  Sender: FDA-Public Use
  Company Number: BE-ELI_LILLY_AND_COMPANY-BE201007000289

PATIENT
  Sex: Male
  Weight: 56.5 kg

DRUGS (17)
  1. PEMETREXED [Suspect]
     Indication: HEAD AND NECK CANCER
     Dosage: 500 MG/M2, ON DAY ONE EVERY 21 DAYS
     Route: 042
     Dates: start: 20100407
  2. CETUXIMAB [Suspect]
     Indication: HEAD AND NECK CANCER
     Dosage: 400 MG/M2, ON DAY ONE CYCLE ONE ONLY
     Route: 042
     Dates: start: 20100407, end: 20100407
  3. CETUXIMAB [Suspect]
     Dosage: 250 MG/M2, WEEKLY (1/W)
     Route: 042
  4. CISPLATIN [Suspect]
     Indication: HEAD AND NECK CANCER
     Dosage: 75 MG/M2, ON DAY ONE EVERY 21 DAYS
     Route: 042
     Dates: start: 20100407
  5. FOLAVIT [Concomitant]
     Dosage: UNK, UNKNOWN
     Dates: start: 20100423
  6. DEXAMETHASONE [Concomitant]
     Dosage: UNK, UNKNOWN
     Dates: start: 20100503, end: 20100508
  7. DEXAMETHASONE [Concomitant]
     Dosage: UNK, UNKNOWN
     Dates: start: 20100524, end: 20100526
  8. DAFALGAN [Concomitant]
     Dosage: UNK, UNKNOWN
     Dates: start: 20100101
  9. OMEPRAZOLE [Concomitant]
     Dosage: UNK, UNKNOWN
     Dates: start: 20070101
  10. NEUROBION /00176001/ [Concomitant]
     Dosage: UNK, UNKNOWN
     Dates: start: 20100508, end: 20100501
  11. LAXOBERON [Concomitant]
     Dosage: UNK, UNKNOWN
     Dates: start: 20100506
  12. MOVICOL /01625101/ [Concomitant]
     Dosage: UNK, UNKNOWN
     Dates: start: 20100519
  13. FRAXODI [Concomitant]
     Dosage: UNK, UNKNOWN
     Dates: start: 20100519
  14. MINOCYCLINE [Concomitant]
     Dosage: UNK, UNKNOWN
     Dates: start: 20100519
  15. TERRAMYCIN HCL W/ POLYMYXIN B SULFATE [Concomitant]
     Dosage: UNK, UNKNOWN
     Dates: start: 20100520
  16. MOTILIUM [Concomitant]
     Dosage: UNK, UNKNOWN
     Dates: start: 20100529
  17. METRONIDAZOLE [Concomitant]

REACTIONS (2)
  - BLOOD CREATININE INCREASED [None]
  - WEIGHT DECREASED [None]
